FAERS Safety Report 17121556 (Version 2)
Quarter: 2020Q1

REPORT INFORMATION
  Report Type: Report from Study
  Country: TR (occurrence: TR)
  Receive Date: 20191206
  Receipt Date: 20200102
  Transmission Date: 20200409
  Serious: Yes (Hospitalization, Other)
  Sender: FDA-Public Use
  Company Number: NVSC2019TR052700

PATIENT
  Sex: Female

DRUGS (1)
  1. NILOTINIB [Suspect]
     Active Substance: NILOTINIB
     Indication: CHRONIC MYELOID LEUKAEMIA
     Dosage: 300 MG, BID
     Route: 048
     Dates: start: 20110608, end: 20191110

REACTIONS (5)
  - Myocardial ischaemia [Not Recovered/Not Resolved]
  - Concomitant disease aggravated [Not Recovered/Not Resolved]
  - Angina pectoris [Unknown]
  - Chest pain [Not Recovered/Not Resolved]
  - Hypertension [Unknown]
